FAERS Safety Report 15472418 (Version 2)
Quarter: 2018Q4

REPORT INFORMATION
  Report Type: Spontaneous
  Country: US (occurrence: US)
  Receive Date: 20181008
  Receipt Date: 20181102
  Transmission Date: 20190205
  Serious: No
  Sender: FDA-Public Use
  Company Number: US-SHIRE-US201837928

PATIENT
  Sex: Female
  Weight: 70.98 kg

DRUGS (2)
  1. GATTEX [Suspect]
     Active Substance: TEDUGLUTIDE\WATER
     Indication: SHORT-BOWEL SYNDROME
     Dosage: 0.12 ML, QOD
     Route: 065
     Dates: start: 2017, end: 20180923
  2. GATTEX [Suspect]
     Active Substance: TEDUGLUTIDE\WATER
     Dosage: 0.3550, 1X/DAY:QD
     Route: 065
     Dates: start: 2017, end: 20180923

REACTIONS (2)
  - Hypersensitivity [Not Recovered/Not Resolved]
  - Skin discolouration [Unknown]
